FAERS Safety Report 10970873 (Version 17)
Quarter: 2016Q2

REPORT INFORMATION
  Report Type: Report from Study
  Country: CA (occurrence: CA)
  Receive Date: 20150331
  Receipt Date: 20160516
  Transmission Date: 20160815
  Serious: Yes (Hospitalization, Other)
  Sender: FDA-Public Use
  Company Number: PHHY2014CA163643

PATIENT
  Age: 56 Year
  Sex: Male

DRUGS (5)
  1. SANDOSTATIN [Suspect]
     Active Substance: OCTREOTIDE ACETATE
     Indication: CARCINOID TUMOUR
     Dosage: 100 UG
     Route: 058
  2. SANDOSTATIN LAR DEPOT [Suspect]
     Active Substance: OCTREOTIDE ACETATE
     Dosage: 60 MG, QMO (EVERY 4 WEEKS)
     Route: 030
     Dates: start: 20141216
  3. SANDOSTATIN LAR DEPOT [Suspect]
     Active Substance: OCTREOTIDE ACETATE
     Indication: CARCINOID TUMOUR
     Dosage: 30 MG, QMO
     Route: 030
     Dates: start: 201409
  4. SANDOSTATIN LAR DEPOT [Suspect]
     Active Substance: OCTREOTIDE ACETATE
     Dosage: 40 MG, QMO
     Route: 030
  5. SANDOSTATIN LAR DEPOT [Suspect]
     Active Substance: OCTREOTIDE ACETATE
     Dosage: 30 MG, QMO (ONCE A MONTH)
     Route: 030
     Dates: end: 20160411

REACTIONS (27)
  - Cardiac valve disease [Unknown]
  - Fatigue [Unknown]
  - Gastrointestinal injury [Unknown]
  - Oxygen saturation abnormal [Unknown]
  - Angina pectoris [Unknown]
  - Abnormal dreams [Recovering/Resolving]
  - Pain [Unknown]
  - Heart injury [Unknown]
  - Malaise [Unknown]
  - Confusional state [Unknown]
  - Dyspnoea [Unknown]
  - Gait disturbance [Unknown]
  - Weight decreased [Unknown]
  - Wrong technique in product usage process [Unknown]
  - Arterial injury [Unknown]
  - Respiratory rate increased [Unknown]
  - Gastrointestinal disorder [Unknown]
  - Urine analysis abnormal [Unknown]
  - Abdominal pain [Unknown]
  - Depressed mood [Unknown]
  - Injection site discomfort [Unknown]
  - Liver injury [Unknown]
  - Hypokinesia [Unknown]
  - Musculoskeletal pain [Unknown]
  - Flushing [Not Recovered/Not Resolved]
  - Asthenia [Unknown]
  - Drug administration error [Unknown]

NARRATIVE: CASE EVENT DATE: 201409
